FAERS Safety Report 5581384-8 (Version None)
Quarter: 2008Q1

REPORT INFORMATION
  Report Type: 
  Country: None (occurrence: None)
  Receive Date: 20080104
  Receipt Date: 20071226
  Transmission Date: 20080703
  Serious: Yes (Hospitalization)
  Sender: FDA-Public Use
  Company Number: FR-BRISTOL-MYERS SQUIBB COMPANY-14029219

PATIENT
  Age: 20 Year
  Sex: Female

DRUGS (6)
  1. ENDOXAN [Suspect]
     Indication: EVANS SYNDROME
     Route: 042
     Dates: start: 20070918, end: 20071017
  2. MABTHERA [Suspect]
     Indication: EVANS SYNDROME
     Route: 042
     Dates: start: 20070918, end: 20071002
  3. TARDYFERON [Concomitant]
  4. TRIATEC [Concomitant]
  5. SPECIAFOLDINE [Concomitant]
  6. EUCALCIC [Concomitant]

REACTIONS (2)
  - CONVULSION [None]
  - REVERSIBLE POSTERIOR LEUKOENCEPHALOPATHY SYNDROME [None]
